FAERS Safety Report 8401115-3 (Version None)
Quarter: 2012Q2

REPORT INFORMATION
  Report Type: 
  Country: None (occurrence: None)
  Receive Date: 20120601
  Receipt Date: 20120529
  Transmission Date: 20120825
  Serious: No
  Sender: FDA-Public Use
  Company Number: US-PFIZER INC-2012129415

PATIENT
  Sex: Female
  Weight: 61.224 kg

DRUGS (2)
  1. CHANTIX [Suspect]
     Indication: SMOKING CESSATION THERAPY
     Dosage: 0.5 MG, 1X/DAY
     Route: 048
     Dates: start: 20120505
  2. CHANTIX [Suspect]
     Dosage: 1 MG, 2X/DAY
     Dates: start: 20120501

REACTIONS (7)
  - DIZZINESS [None]
  - NAUSEA [None]
  - GASTROINTESTINAL DISORDER [None]
  - FEELING ABNORMAL [None]
  - ABNORMAL DREAMS [None]
  - FATIGUE [None]
  - DISTURBANCE IN ATTENTION [None]
